FAERS Safety Report 14711388 (Version 2)
Quarter: 2019Q2

REPORT INFORMATION
  Report Type: Spontaneous
  Country: US (occurrence: US)
  Receive Date: 20180403
  Receipt Date: 20190606
  Transmission Date: 20190711
  Serious: Yes (Other)
  Sender: FDA-Public Use
  Company Number: US-PFIZER INC-2018134346

PATIENT
  Age: 73 Year
  Sex: Female

DRUGS (2)
  1. XELJANZ XR [Suspect]
     Active Substance: TOFACITINIB CITRATE
     Dosage: 11 MG, UNK
  2. FOSAMAX [Suspect]
     Active Substance: ALENDRONATE SODIUM

REACTIONS (3)
  - Femur fracture [Recovering/Resolving]
  - Deafness [Unknown]
  - Pathological fracture [Recovering/Resolving]

NARRATIVE: CASE EVENT DATE: 201806
